FAERS Safety Report 4891159-0 (Version None)
Quarter: 2006Q1

REPORT INFORMATION
  Report Type: 
  Country: None (occurrence: None)
  Receive Date: 20060123
  Receipt Date: 20060111
  Transmission Date: 20060701
  Serious: Yes (Hospitalization)
  Sender: FDA-Public Use
  Company Number: HQWYE310412JAN06

PATIENT
  Age: 43 Year
  Sex: Male

DRUGS (6)
  1. EFFEXOR [Suspect]
  2. SEROQUEL 9QUETIAPINE, ) [Suspect]
     Indication: AFFECTIVE DISORDER
     Dosage: 800 MG 1X PER 1 DAY; ORAL
     Route: 048
     Dates: start: 20050123
  3. CLONAZEPAM [Concomitant]
  4. VALPROATE SODIUM [Concomitant]
  5. CHLORPROMAZINE HCL [Concomitant]
  6. LAMOTRIGINE [Concomitant]

REACTIONS (2)
  - AGGRESSION [None]
  - ANGER [None]
